FAERS Safety Report 4350143-6 (Version None)
Quarter: 2004Q2

REPORT INFORMATION
  Report Type: 
  Country: None (occurrence: None)
  Receive Date: 20040429
  Receipt Date: 20040209
  Transmission Date: 20050107
  Serious: Yes (Other)
  Sender: FDA-Public Use
  Company Number: PHBS2004CA01952

PATIENT
  Sex: Female

DRUGS (1)
  1. ESTRACOMB TTS [Suspect]
     Indication: HORMONE REPLACEMENT THERAPY
     Dosage: 50 ESTR / 250 NORE UG/DAY
     Route: 062

REACTIONS (1)
  - EYE OPERATION [None]
